FAERS Safety Report 4847610-5 (Version None)
Quarter: 2005Q4

REPORT INFORMATION
  Report Type: 
  Country: None (occurrence: None)
  Receive Date: 20051205
  Receipt Date: 20051124
  Transmission Date: 20060501
  Serious: Yes (Other)
  Sender: FDA-Public Use
  Company Number: 2005159749

PATIENT
  Age: 71 Year
  Sex: Female

DRUGS (2)
  1. NORVASC [Suspect]
     Indication: BLOOD PRESSURE
     Dosage: 5 MG, ORAL
     Route: 048
  2. MEDICATION FOR TREATING DEPRESSION (ANTIDEPRESSANTS) [Concomitant]

REACTIONS (3)
  - DEAFNESS [None]
  - DRY MOUTH [None]
  - TINNITUS [None]
